FAERS Safety Report 9293330 (Version 2)
Quarter: 2013Q3

REPORT INFORMATION
  Report Type: Report from Study
  Country: DE (occurrence: DE)
  Receive Date: 20130516
  Receipt Date: 20130813
  Transmission Date: 20140515
  Serious: Yes (Hospitalization, Other)
  Sender: FDA-Public Use
  Company Number: DE-ELI_LILLY_AND_COMPANY-DE201305001014

PATIENT
  Sex: Male

DRUGS (4)
  1. TERIPARATIDE [Suspect]
     Indication: OSTEOPOROSIS
     Dosage: UNK, QD
     Route: 058
     Dates: start: 20121029
  2. PREDNISOLONE [Concomitant]
     Dosage: 9 MG, UNKNOWN
     Route: 065
  3. TROMPHYLLIN [Concomitant]
     Dosage: 300 MG, QD
     Route: 065
  4. TAMSULOSIN [Concomitant]
     Dosage: UNK, UNKNOWN
     Route: 065

REACTIONS (3)
  - Malignant melanoma [Not Recovered/Not Resolved]
  - Skin cancer [Not Recovered/Not Resolved]
  - Neuroendocrine carcinoma of the skin [Not Recovered/Not Resolved]
